FAERS Safety Report 16443138 (Version 2)
Quarter: 2019Q3

REPORT INFORMATION
  Report Type: Report from Study
  Country: None (occurrence: US)
  Receive Date: 20190617
  Receipt Date: 20190708
  Transmission Date: 20191004
  Serious: Yes (Hospitalization, Other)
  Sender: FDA-Public Use
  Company Number: US-ABBVIE-19K-163-2817736-00

PATIENT
  Sex: Female
  Weight: 90.8 kg

DRUGS (4)
  1. OMEPRAZOLE. [Concomitant]
     Active Substance: OMEPRAZOLE
     Indication: REFLUX LARYNGITIS
  2. HUMIRA [Suspect]
     Active Substance: ADALIMUMAB
     Indication: PSORIASIS
     Route: 058
     Dates: start: 201905
  3. HUMIRA [Suspect]
     Active Substance: ADALIMUMAB
     Indication: PSORIATIC ARTHROPATHY
     Dosage: 6 PENS 84 DAYS
     Route: 058
     Dates: end: 20190327
  4. VITAMIN D3 [Concomitant]
     Active Substance: CHOLECALCIFEROL
     Indication: VITAMIN SUPPLEMENTATION

REACTIONS (6)
  - Road traffic accident [Recovered/Resolved]
  - Skin swelling [Recovering/Resolving]
  - Back injury [Not Recovered/Not Resolved]
  - Pain in extremity [Recovering/Resolving]
  - Spinal fusion acquired [Recovered/Resolved]
  - Pharyngeal mass [Recovered/Resolved]

NARRATIVE: CASE EVENT DATE: 2019
